FAERS Safety Report 12605942 (Version 1)
Quarter: 2016Q3

REPORT INFORMATION
  Report Type: Spontaneous
  Country: AT (occurrence: AT)
  Receive Date: 20160729
  Receipt Date: 20160729
  Transmission Date: 20161109
  Serious: Yes (Other)
  Sender: FDA-Public Use
  Company Number: AT-ROCHE-1804367

PATIENT
  Age: 73 Year
  Sex: Male

DRUGS (1)
  1. XELODA [Suspect]
     Active Substance: CAPECITABINE
     Indication: COLORECTAL CANCER
     Dosage: CONCOMITANT TO RADIO THERAPY
     Route: 065
     Dates: start: 201502, end: 201503

REACTIONS (3)
  - Monoparesis [Not Recovered/Not Resolved]
  - Paraesthesia [Unknown]
  - Chronic inflammatory demyelinating polyradiculoneuropathy [Not Recovered/Not Resolved]

NARRATIVE: CASE EVENT DATE: 201505
